FAERS Safety Report 15229904 (Version 6)
Quarter: 2020Q3

REPORT INFORMATION
  Report Type: Other
  Country: US (occurrence: US)
  Receive Date: 20180802
  Receipt Date: 20200903
  Transmission Date: 20201102
  Serious: Yes (Hospitalization, Other)
  Sender: FDA-Public Use
  Company Number: US-ROCHE-2161887

PATIENT
  Age: 58 Year
  Sex: Male
  Weight: 111.23 kg

DRUGS (14)
  1. HYDROCHLOROTHIAZIDE;LOSARTAN [Concomitant]
     Active Substance: HYDROCHLOROTHIAZIDE\LOSARTAN
     Route: 048
  2. NORCO [Concomitant]
     Active Substance: ACETAMINOPHEN\HYDROCODONE BITARTRATE
     Indication: PAIN
     Route: 048
  3. KEPPRA [Concomitant]
     Active Substance: LEVETIRACETAM
  4. FINASTERIDE. [Concomitant]
     Active Substance: FINASTERIDE
     Indication: AUTOMATIC BLADDER
  5. TAMSULOSIN [Concomitant]
     Active Substance: TAMSULOSIN
  6. AMPHOTERICIN [Concomitant]
     Active Substance: AMPHOTERICIN B
  7. OCREVUS [Suspect]
     Active Substance: OCRELIZUMAB
     Indication: PRIMARY PROGRESSIVE MULTIPLE SCLEROSIS
     Dosage: 1ST INFUSION
     Route: 042
     Dates: start: 201710, end: 201710
  8. OCREVUS [Suspect]
     Active Substance: OCRELIZUMAB
     Dosage: 2 DOSES, ONGOING: NO
     Route: 042
     Dates: start: 20171009, end: 20171017
  9. AMPYRA [Concomitant]
     Active Substance: DALFAMPRIDINE
     Indication: MULTIPLE SCLEROSIS
     Route: 048
  10. LOSARTAN. [Concomitant]
     Active Substance: LOSARTAN
  11. FISH OIL [Concomitant]
     Active Substance: FISH OIL
  12. BACLOFEN. [Concomitant]
     Active Substance: BACLOFEN
     Dosage: 2 IN AM AND 1 IN EVENING
     Route: 048
  13. MOXIFLOXACIN. [Concomitant]
     Active Substance: MOXIFLOXACIN
  14. AMLODIPINE [Concomitant]
     Active Substance: AMLODIPINE BESYLATE
     Dosage: ONE TABLET BY MOUTH ONCE DAILY
     Route: 048

REACTIONS (11)
  - Acute kidney injury [Unknown]
  - Hyperkalaemia [Unknown]
  - Rash [Unknown]
  - Meningitis cryptococcal [Recovered/Resolved]
  - Herpes simplex test positive [Unknown]
  - Essential hypertension [Unknown]
  - Weight decreased [Unknown]
  - Drug ineffective [Unknown]
  - Seizure [Recovered/Resolved]
  - Hypertension [Not Recovered/Not Resolved]
  - Automatic bladder [Not Recovered/Not Resolved]

NARRATIVE: CASE EVENT DATE: 2018
